FAERS Safety Report 6441446-X (Version None)
Quarter: 2009Q4

REPORT INFORMATION
  Report Type: 
  Country: None (occurrence: None)
  Receive Date: 20091116
  Receipt Date: 20091109
  Transmission Date: 20100525
  Serious: Yes (Hospitalization)
  Sender: FDA-Public Use
  Company Number: A0808357A

PATIENT
  Age: 80 Year
  Sex: Female

DRUGS (6)
  1. ZOVIRAX [Suspect]
  2. LEVOTHYROXINE SODIUM [Concomitant]
  3. ASPIRIN [Concomitant]
  4. SPIRONOLACTONE [Concomitant]
  5. NORVASC [Concomitant]
  6. ZOVIRAX [Concomitant]

REACTIONS (2)
  - OFF LABEL USE [None]
  - WOUND HAEMORRHAGE [None]
